FAERS Safety Report 5845336-2 (Version None)
Quarter: 2008Q3

REPORT INFORMATION
  Report Type: 
  Country: None (occurrence: None)
  Receive Date: 20080812
  Receipt Date: 20080801
  Transmission Date: 20090109
  Serious: Yes (Other)
  Sender: FDA-Public Use
  Company Number: 2008019351

PATIENT
  Age: 14 Year
  Sex: Male

DRUGS (1)
  1. DRAMAMINE [Suspect]
     Indication: ANTIEMETIC SUPPORTIVE CARE
     Dosage: 50 MG, ORAL
     Route: 048

REACTIONS (4)
  - EPILEPSY [None]
  - HAEMORRHAGIC INFARCTION [None]
  - PROTEIN S DEFICIENCY [None]
  - SUPERIOR SAGITTAL SINUS THROMBOSIS [None]
